FAERS Safety Report 4401477-8 (Version None)
Quarter: 2004Q3

REPORT INFORMATION
  Report Type: 
  Country: None (occurrence: None)
  Receive Date: 20040907
  Receipt Date: 20040521
  Transmission Date: 20050211
  Serious: No
  Sender: FDA-Public Use
  Company Number: US-BRISTOL-MYERS SQUIBB COMPANY-12593984

PATIENT
  Age: 72 Year
  Sex: Male
  Weight: 100 kg

DRUGS (8)
  1. COUMADIN [Suspect]
     Indication: ATRIAL FIBRILLATION
     Dosage: VARIABLE DOSE= 5 MG AND 6 MG ALTERNATING DAYS.
     Route: 048
     Dates: start: 19990101
  2. ATENOLOL [Concomitant]
  3. LIPITOR [Concomitant]
  4. LOTREL [Concomitant]
  5. PROTONIX [Concomitant]
  6. CELEBREX [Concomitant]
  7. OXYCONTIN [Concomitant]
  8. GLUCOSAMINE+CHONDROITIN+MSM [Concomitant]

REACTIONS (1)
  - INTERNATIONAL NORMALISED RATIO DECREASED [None]
